FAERS Safety Report 18256641 (Version 1)
Quarter: 2020Q3

REPORT INFORMATION
  Report Type: Spontaneous
  Country: DE (occurrence: DE)
  Receive Date: 20200911
  Receipt Date: 20200911
  Transmission Date: 20201103
  Serious: Yes (Hospitalization)
  Sender: FDA-Public Use
  Company Number: DE-ACCORD-200287

PATIENT
  Age: 92 Year
  Sex: Female
  Weight: 60 kg

DRUGS (23)
  1. TELMISARTAN. [Concomitant]
     Active Substance: TELMISARTAN
     Indication: HYPERTENSION
     Route: 048
  2. RISPERIDONE. [Concomitant]
     Active Substance: RISPERIDONE
  3. ACETYLSALICYLIC ACID [Concomitant]
     Active Substance: ASPIRIN
     Indication: ARTERIOSCLEROSIS
     Route: 048
     Dates: end: 20200114
  4. BISOPROLOL [Concomitant]
     Active Substance: BISOPROLOL
     Indication: HYPERTENSION
     Dosage: IF REQUIRED, ONLY 2.5 MG IN THE EVENING
     Route: 048
  5. APIXABAN [Concomitant]
     Active Substance: APIXABAN
     Dosage: 2.5?0?2.5
     Dates: start: 20200820
  6. AMLODIPINE [Concomitant]
     Active Substance: AMLODIPINE BESYLATE
     Indication: HYPERTENSION
     Route: 048
     Dates: start: 20200825
  7. PIPAMPERONE/PIPAMPERONE HYDROCHLORIDE [Concomitant]
     Active Substance: PIPAMPERONE HYDROCHLORIDE
  8. LACTULOSE. [Concomitant]
     Active Substance: LACTULOSE
     Indication: CONSTIPATION
     Dosage: 3X10 ML FOR 2 YEARS
     Dates: start: 2018
  9. GABAPENTIN. [Concomitant]
     Active Substance: GABAPENTIN
     Dates: start: 20200615, end: 20200619
  10. ESOMEPRAZOLE/ESOMEPRAZOLE MAGNESIUM/ESOMEPRAZOLE SODIUM [Suspect]
     Active Substance: ESOMEPRAZOLE
     Indication: GASTRITIS
     Dosage: STRENGTH: 20 MG, 1?0?1
     Route: 048
     Dates: start: 20200607, end: 20200824
  11. LORAZEPAM. [Concomitant]
     Active Substance: LORAZEPAM
     Indication: SLEEP DISORDER
  12. APIXABAN [Concomitant]
     Active Substance: APIXABAN
  13. TORASEMIDE [Concomitant]
     Active Substance: TORSEMIDE
  14. L?THYROXIN [Concomitant]
     Active Substance: LEVOTHYROXINE SODIUM
     Indication: HYPERTHYROIDISM
     Dosage: 1?0?0, STRENGTH: 50 UG
     Dates: start: 2007
  15. GABAPENTIN. [Concomitant]
     Active Substance: GABAPENTIN
     Dates: start: 20200626
  16. HYDROCHLOROTHIAZIDE. [Concomitant]
     Active Substance: HYDROCHLOROTHIAZIDE
     Indication: OLIGURIA
     Dosage: 12.5?0?0
  17. LANTUS [Concomitant]
     Active Substance: INSULIN GLARGINE
     Dosage: 1?0?0 TAKING REGULARLY IN THE MORNING SINCE 2018/2019
     Dates: start: 2018
  18. TAVOR [Concomitant]
     Indication: SLEEP DISORDER
  19. PANTOPRAZOLE [Suspect]
     Active Substance: PANTOPRAZOLE
     Indication: GASTRITIS
     Dosage: STRENGTH: 40 MG, 1?0?1
     Route: 048
     Dates: start: 201807
  20. PANTOPRAZOLE [Suspect]
     Active Substance: PANTOPRAZOLE
     Indication: GASTRITIS
     Dosage: STRENGTH: 40 MG, IN BETWEEN THE DOSE WAS REDUCED TO 20 MG
     Dates: end: 20200606
  21. VOMEX [Concomitant]
     Active Substance: DIMENHYDRINATE
     Indication: NAUSEA
  22. SIMVASTATIN. [Concomitant]
     Active Substance: SIMVASTATIN
     Dosage: 0?0?1
     Route: 048
  23. MIRTAZAPINE. [Concomitant]
     Active Substance: MIRTAZAPINE

REACTIONS (6)
  - Sleep disorder [Unknown]
  - Adverse reaction [Unknown]
  - Restlessness [Unknown]
  - Nausea [Unknown]
  - Headache [Unknown]
  - Anxiety [Unknown]

NARRATIVE: CASE EVENT DATE: 201807
